FAERS Safety Report 9934612 (Version 1)
Quarter: 2014Q1

REPORT INFORMATION
  Report Type: Spontaneous
  Country: US (occurrence: US)
  Receive Date: 20140228
  Receipt Date: 20140228
  Transmission Date: 20141002
  Serious: Yes (Other)
  Sender: FDA-Public Use
  Company Number: US-FRI-1000054643

PATIENT
  Age: 69 Year
  Sex: Male

DRUGS (18)
  1. DALIRESP [Suspect]
     Indication: CHRONIC OBSTRUCTIVE PULMONARY DISEASE
     Dosage: 500 MCG
     Route: 048
     Dates: start: 201302, end: 2013
  2. DALIRESP [Suspect]
     Dosage: 250 MCG
     Route: 048
     Dates: start: 2013, end: 2013
  3. DALIRESP [Suspect]
     Dosage: 500 MCG
     Route: 048
     Dates: start: 2013
  4. PRAVASTATIN [Concomitant]
  5. BUSPAR [Concomitant]
  6. PROAIR HFA [Concomitant]
  7. SPIRIVA [Concomitant]
  8. DULERA [Concomitant]
  9. CENTRUM MVI [Concomitant]
  10. CINNAMON [Concomitant]
  11. FISH OIL [Concomitant]
  12. VITAMIN B 12 [Concomitant]
  13. GARLIC [Concomitant]
  14. ASA [Concomitant]
  15. NEXIUM [Concomitant]
  16. MAGNESIUM [Concomitant]
  17. CO Q10 [Concomitant]
  18. CAYENNE PEPPER [Concomitant]

REACTIONS (4)
  - Bradycardia [Not Recovered/Not Resolved]
  - Nausea [Recovered/Resolved]
  - Insomnia [Recovered/Resolved]
  - Diarrhoea [Recovered/Resolved]
